FAERS Safety Report 16622604 (Version 9)
Quarter: 2020Q2

REPORT INFORMATION
  Report Type: Report from Study
  Country: US (occurrence: US)
  Receive Date: 20190723
  Receipt Date: 20200427
  Transmission Date: 20200713
  Serious: Yes (Hospitalization)
  Sender: FDA-Public Use
  Company Number: US-ACTELION-A-NJ2018-180293

PATIENT
  Age: 72 Year
  Sex: Female
  Weight: 54.88 kg

DRUGS (11)
  1. VELETRI [Suspect]
     Active Substance: EPOPROSTENOL
     Indication: PULMONARY ARTERIAL HYPERTENSION
     Dosage: 6 NG/KG, PER MIN
     Route: 042
     Dates: start: 20180919
  2. VELETRI [Suspect]
     Active Substance: EPOPROSTENOL
     Dosage: 23.5 UNK
     Route: 042
  3. CARVEDILOL. [Concomitant]
     Active Substance: CARVEDILOL
  4. UPTRAVI [Concomitant]
     Active Substance: SELEXIPAG
     Indication: PULMONARY ARTERIAL HYPERTENSION
     Route: 048
  5. VELETRI [Suspect]
     Active Substance: EPOPROSTENOL
     Dosage: 5.5 NG/KG, PER MIN
     Route: 042
  6. VELETRI [Suspect]
     Active Substance: EPOPROSTENOL
     Dosage: 3 NG/KG, PER MIN
     Route: 042
     Dates: start: 20180919
  7. VELETRI [Suspect]
     Active Substance: EPOPROSTENOL
     Dosage: 21.5 NG/KG, PER MIN
     Route: 042
  8. VELETRI [Suspect]
     Active Substance: EPOPROSTENOL
     Dosage: 4.5 NG/KG, PER MIN
     Route: 042
  9. OXYGEN. [Concomitant]
     Active Substance: OXYGEN
  10. OPSUMIT [Suspect]
     Active Substance: MACITENTAN
     Indication: PULMONARY ARTERIAL HYPERTENSION
     Dosage: 10 MG, QD
     Route: 048
     Dates: start: 20180806
  11. SPIRONOLACTONE. [Concomitant]
     Active Substance: SPIRONOLACTONE

REACTIONS (25)
  - Pain in jaw [Unknown]
  - Palpitations [Not Recovered/Not Resolved]
  - Respiratory failure [Recovered/Resolved with Sequelae]
  - Arteriovenous malformation [Unknown]
  - Flushing [Unknown]
  - First bite syndrome [Unknown]
  - Abdominal distension [Unknown]
  - Pneumonia [Recovered/Resolved with Sequelae]
  - Pulmonary capillary haemangiomatosis [Unknown]
  - Fatigue [Unknown]
  - Diarrhoea [Unknown]
  - Pulmonary arterial hypertension [Recovered/Resolved]
  - Inflammation [Unknown]
  - Systemic sclerosis pulmonary [Unknown]
  - Epistaxis [Unknown]
  - Rhinorrhoea [Unknown]
  - Oxygen saturation decreased [Recovered/Resolved]
  - Catheter site rash [Unknown]
  - Dizziness [Not Recovered/Not Resolved]
  - Dyspnoea [Recovered/Resolved with Sequelae]
  - Cough [Recovered/Resolved with Sequelae]
  - Hypotension [Recovered/Resolved]
  - Nausea [Unknown]
  - Weight decreased [Unknown]
  - Throat irritation [Unknown]

NARRATIVE: CASE EVENT DATE: 2018
